FAERS Safety Report 23960915 (Version 1)
Quarter: 2024Q2

REPORT INFORMATION
  Report Type: Spontaneous
  Country: US (occurrence: US)
  Receive Date: 20240611
  Receipt Date: 20240611
  Transmission Date: 20240716
  Serious: No
  Sender: FDA-Public Use
  Company Number: US-STRIDES ARCOLAB LIMITED-2023SP018899

PATIENT
  Sex: Female
  Weight: 78.912 kg

DRUGS (14)
  1. MORPHINE SULFATE [Suspect]
     Active Substance: MORPHINE SULFATE
     Indication: Product used for unknown indication
     Dosage: UNK
     Route: 065
  2. BENZONATATE [Suspect]
     Active Substance: BENZONATATE
     Indication: Bronchitis
     Dosage: UNK (MAIN BRAND)
     Route: 065
  3. BENZONATATE [Suspect]
     Active Substance: BENZONATATE
     Dosage: 1 DOSAGE FORM (1 CAPSULE ON 1ST DAY)
     Route: 048
     Dates: start: 20231213
  4. BENZONATATE [Suspect]
     Active Substance: BENZONATATE
     Dosage: 3 DOSAGE FORM (3 CAPSULES ON 2ND DAY)
     Route: 048
     Dates: start: 20231214
  5. BENZONATATE [Suspect]
     Active Substance: BENZONATATE
     Dosage: 3 DOSAGE FORM (3 CAPSULES ON 4TH DAY)
     Route: 048
     Dates: start: 20231216, end: 20231216
  6. ZOLPIDEM [Suspect]
     Active Substance: ZOLPIDEM TARTRATE
     Indication: Sleep apnoea syndrome
     Dosage: 5 MILLIGRAM, 2 TIMES A WEEK (TABLET)
     Route: 065
  7. AZITHROMYCIN [Suspect]
     Active Substance: AZITHROMYCIN
     Indication: Product used for unknown indication
     Dosage: UNK
     Route: 065
  8. COMPAZINE [Suspect]
     Active Substance: PROCHLORPERAZINE MALEATE
     Indication: Product used for unknown indication
     Dosage: UNK
     Route: 065
  9. METHADONE [Concomitant]
     Active Substance: METHADONE HYDROCHLORIDE
     Indication: Pain
     Dosage: 5 MG, BID
     Route: 065
  10. METOPROLOL [Concomitant]
     Active Substance: METOPROLOL
     Indication: Ventricular extrasystoles
     Dosage: 50 MILLIGRAM, QD (AT NIGHT)
     Route: 065
  11. BACLOFEN [Concomitant]
     Active Substance: BACLOFEN
     Indication: Muscle spasms
     Dosage: 10 MILLIGRAM, TID
     Route: 065
  12. PREGABALIN [Concomitant]
     Active Substance: PREGABALIN
     Indication: Neuralgia
     Dosage: 150 MILLIGRAM, BID
     Route: 065
  13. SERTRALINE [Concomitant]
     Active Substance: SERTRALINE HYDROCHLORIDE
     Indication: Depression
     Dosage: 100 MILLIGRAM/ TWO TABLETS EVERY DAY
     Route: 065
  14. SYNTHROID [Concomitant]
     Active Substance: LEVOTHYROXINE SODIUM
     Indication: Hypothyroidism
     Dosage: 125 MICROGRAM, QD, EVERY DAY
     Route: 065

REACTIONS (3)
  - Drug hypersensitivity [Unknown]
  - Drug ineffective [Unknown]
  - Off label use [Unknown]
